FAERS Safety Report 8853360 (Version 2)
Quarter: 2012Q4

REPORT INFORMATION
  Report Type: 
  Country: US (occurrence: US)
  Receive Date: 20121022
  Receipt Date: 20121127
  Transmission Date: 20130627
  Serious: Yes (Other)
  Sender: FDA-Public Use
  Company Number: US-PFIZER INC-2012262473

PATIENT
  Age: 25 Year
  Sex: Female
  Weight: 58.96 kg

DRUGS (2)
  1. EFFEXOR [Suspect]
     Indication: DEPRESSION
     Dosage: 37.5 mg, daily
     Dates: start: 20120801
  2. LEVOTHYROXINE [Concomitant]
     Indication: HYPOTHYROIDISM
     Dosage: 125 ug, daily
     Dates: start: 2002

REACTIONS (2)
  - Blood pressure increased [Recovered/Resolved]
  - Weight increased [Recovered/Resolved]
